FAERS Safety Report 5726567-9 (Version None)
Quarter: 2008Q2

REPORT INFORMATION
  Report Type: 
  Country: None (occurrence: None)
  Receive Date: 20080502
  Receipt Date: 20080422
  Transmission Date: 20081010
  Serious: No
  Sender: FDA-Public Use
  Company Number: BR-ROCHE-560678

PATIENT
  Age: 28 Year
  Sex: Female
  Weight: 62 kg

DRUGS (3)
  1. ROACUTAN [Suspect]
     Indication: ACNE
     Route: 065
     Dates: start: 20071001, end: 20080415
  2. CICLO [Concomitant]
     Indication: CONTRACEPTION
     Dosage: DRUG NAME: CICLO21
  3. CICLO [Concomitant]
     Dosage: DRUG NAME: CICLO21

REACTIONS (2)
  - NO ADVERSE EVENT [None]
  - PREGNANCY [None]
